FAERS Safety Report 14274718 (Version 1)
Quarter: 2017Q4

REPORT INFORMATION
  Report Type: Spontaneous
  Country: US (occurrence: US)
  Receive Date: 20171212
  Receipt Date: 20171212
  Transmission Date: 20180321
  Serious: Yes (Disabling, Other)
  Sender: FDA-Public Use
  Company Number: None

PATIENT
  Age: 41 Year
  Sex: Female
  Weight: 53.1 kg

DRUGS (3)
  1. DEXTROAMPHET SACCHARAT, AMPHET ASPARTATE, DEXTROAMPHET SULFATE AND AMPHET SULFAT [Suspect]
     Active Substance: AMPHETAMINE ASPARTATE\AMPHETAMINE SULFATE\DEXTROAMPHETAMINE SACCHARATE\DEXTROAMPHETAMINE SULFATE
     Indication: PRODUCT USED FOR UNKNOWN INDICATION
     Dosage: QUANTITY:5 TABLET(S);OTHER FREQUENCY:10-5-10;?
     Route: 048
     Dates: start: 20171201, end: 20171211
  2. DEXTROAMPHET SACCHARAT, AMPHET ASPARTATE, DEXTROAMPHET SULFATE AND AMPHET SULFAT [Suspect]
     Active Substance: AMPHETAMINE ASPARTATE\AMPHETAMINE SULFATE\DEXTROAMPHETAMINE SACCHARATE\DEXTROAMPHETAMINE SULFATE
     Indication: PRODUCT USED FOR UNKNOWN INDICATION
     Dosage: QUANTITY:2.5 TABLET(S);OTHER FREQUENCY:10-5-10;?
     Route: 048
  3. ALBUTERAL [Concomitant]
     Active Substance: ALBUTEROL

REACTIONS (29)
  - Confusional state [None]
  - Adverse drug reaction [None]
  - Incorrect dose administered [None]
  - Listless [None]
  - Memory impairment [None]
  - Dysarthria [None]
  - Fear [None]
  - Panic attack [None]
  - Mobility decreased [None]
  - Palpitations [None]
  - Vertigo [None]
  - Intentional product misuse [None]
  - Reaction to excipient [None]
  - Self-medication [None]
  - Disturbance in attention [None]
  - Feeling abnormal [None]
  - Impaired driving ability [None]
  - Loss of personal independence in daily activities [None]
  - Lethargy [None]
  - Product substitution issue [None]
  - Therapy cessation [None]
  - Respiratory tract infection [None]
  - Abnormal behaviour [None]
  - Drug dispensing error [None]
  - Mental impairment [None]
  - Hypersensitivity [None]
  - Intentional dose omission [None]
  - Drug ineffective [None]
  - Therapy change [None]

NARRATIVE: CASE EVENT DATE: 20171209
